FAERS Safety Report 14535319 (Version 3)
Quarter: 2024Q3

REPORT INFORMATION
  Report Type: Spontaneous
  Country: IE (occurrence: IE)
  Receive Date: 20180215
  Receipt Date: 20240710
  Transmission Date: 20241017
  Serious: Yes (Life-Threatening, Hospitalization, Other)
  Sender: PFIZER
  Company Number: None

PATIENT
  Age: 49 Year
  Sex: Male

DRUGS (20)
  1. CARBOPLATIN [Suspect]
     Active Substance: CARBOPLATIN
     Indication: Non-Hodgkin^s lymphoma
     Dosage: 710 MG, 1X/DAY D2
     Route: 042
  2. CARBOPLATIN [Suspect]
     Active Substance: CARBOPLATIN
     Dosage: UNK
     Route: 042
  3. ETOPOSIDE [Suspect]
     Active Substance: ETOPOSIDE
     Indication: Non-Hodgkin^s lymphoma
     Dosage: UNK
     Route: 042
  4. ETOPOSIDE [Suspect]
     Active Substance: ETOPOSIDE
     Dosage: 220 MG, 1X/DAY FROM D1 TO D3
     Route: 042
     Dates: start: 20171103, end: 20171105
  5. MESNA [Suspect]
     Active Substance: MESNA
     Indication: Non-Hodgkin^s lymphoma
     Dosage: 2200 MG, UNK (D3: 3HRS,6HRS,9HRS POST IFOSFAMIDE)
     Route: 042
  6. MESNA [Suspect]
     Active Substance: MESNA
     Dosage: 10900 MG, (D2 + D32200MG - 3HRS, 6HRS, 9HRS POST IFOSFAMINDE)
     Route: 042
  7. IFOSFAMIDE [Suspect]
     Active Substance: IFOSFAMIDE
     Indication: Non-Hodgkin^s lymphoma
     Dosage: 10880 MG, D2
     Route: 042
  8. IFOSFAMIDE [Suspect]
     Active Substance: IFOSFAMIDE
     Dosage: UNK
  9. IFOSFAMIDE [Suspect]
     Active Substance: IFOSFAMIDE
     Dosage: UNK
  10. ADCETRIS [Suspect]
     Active Substance: BRENTUXIMAB VEDOTIN
     Indication: Non-Hodgkin^s lymphoma
     Dosage: 165 MG, 1X/DAY (D1 ONLYSECOND REPORTER NOTES THAT THEY ARE UNSURE OF DURATION AS PATIENT HAD TREATME
     Route: 042
     Dates: start: 20171103, end: 20171103
  11. ADCETRIS [Suspect]
     Active Substance: BRENTUXIMAB VEDOTIN
     Dosage: UNK
  12. MYCOSTATIN [Concomitant]
     Active Substance: NYSTATIN
     Indication: Prophylaxis
     Dosage: 1 ML, UNK
  13. DIETARY SUPPLEMENT [Concomitant]
     Active Substance: DIETARY SUPPLEMENT
     Indication: Macular degeneration
     Dosage: UNK
  14. LYRICA [Concomitant]
     Active Substance: PREGABALIN
     Indication: Back pain
     Dosage: 50 MG (ONCE EVERY 8 HOURS)
     Route: 048
  15. CYCLIZINE [Concomitant]
     Active Substance: CYCLIZINE
     Indication: Prophylaxis
     Dosage: 50 MG AS NECESSARY DOSE (THREE TIMES A DAY)
  16. NEPRAMEL [Concomitant]
     Indication: Prophylaxis against gastrointestinal ulcer
     Dosage: 40 MG, ONCE EVERY 24 HOURS
     Route: 048
  17. VALTREX [Concomitant]
     Active Substance: VALACYCLOVIR HYDROCHLORIDE
     Indication: Prophylaxis
     Dosage: 500 MG, ONCE EVERY 24 HOURS)
     Route: 048
  18. LASIX [Concomitant]
     Active Substance: FUROSEMIDE
     Indication: Fluid retention
     Dosage: 1 DF, AS NEEDED (20-40MG)
  19. ALLOPURINOL [Concomitant]
     Active Substance: ALLOPURINOL
     Indication: Prophylaxis
     Dosage: 300 MG, ONCE EVERY 24 HOURS
     Route: 048
  20. METOCLOPRAMIDE [Concomitant]
     Active Substance: METOCLOPRAMIDE
     Dosage: 10 MG, ONCE EVERY 8 HOURS

REACTIONS (3)
  - Renal failure [Recovering/Resolving]
  - Acute hepatic failure [Recovering/Resolving]
  - Blood pressure decreased [Recovering/Resolving]

NARRATIVE: CASE EVENT DATE: 20171101
